FAERS Safety Report 8242124-7 (Version None)
Quarter: 2012Q1

REPORT INFORMATION
  Report Type: 
  Country: None (occurrence: None)
  Receive Date: 20120314
  Receipt Date: 20100503
  Transmission Date: 20120608
  Serious: No
  Sender: FDA-Public Use
  Company Number: PHHY2010US29168

PATIENT
  Sex: Male

DRUGS (1)
  1. FANAPT [Suspect]
     Dosage: ORAL
     Route: 048

REACTIONS (6)
  - FATIGUE [None]
  - THERAPEUTIC RESPONSE DECREASED [None]
  - EJACULATION DISORDER [None]
  - DRY MOUTH [None]
  - JOINT SWELLING [None]
  - DIZZINESS [None]
